FAERS Safety Report 8586472 (Version 3)
Quarter: 2013Q3

REPORT INFORMATION
  Report Type: Spontaneous
  Country: US (occurrence: US)
  Receive Date: 20120530
  Receipt Date: 20130807
  Transmission Date: 20140515
  Serious: Yes (Hospitalization)
  Sender: FDA-Public Use
  Company Number: US-GLAXOSMITHKLINE-A0752854A

PATIENT
  Age: 65 Year
  Sex: Female

DRUGS (25)
  1. SERETIDE [Suspect]
     Indication: CHRONIC OBSTRUCTIVE PULMONARY DISEASE
     Route: 055
     Dates: start: 20080910, end: 20081007
  2. ADVAIR [Suspect]
     Indication: CHRONIC OBSTRUCTIVE PULMONARY DISEASE
     Dosage: 1PUFF TWICE PER DAY
     Route: 055
  3. UNSPECIFIED MEDICATION [Suspect]
     Indication: PRODUCT USED FOR UNKNOWN INDICATION
     Route: 055
  4. OXYGEN [Concomitant]
     Dosage: 2PCT AT NIGHT
  5. ALBUTEROL [Concomitant]
  6. DIAVAN [Concomitant]
  7. NEXIUM [Concomitant]
  8. AMBIEN [Concomitant]
  9. SPIRIVA [Concomitant]
  10. FISH OIL [Concomitant]
  11. WARFARIN [Concomitant]
  12. ZOLPIDEM [Concomitant]
  13. EXFORGE [Concomitant]
  14. VITAMIN D [Concomitant]
  15. UNSPECIFIED MEDICATION [Concomitant]
  16. ALEVE [Concomitant]
  17. TYLENOL [Concomitant]
  18. PROAIR HFA [Concomitant]
  19. HCTZ [Concomitant]
  20. POTASSIUM [Concomitant]
  21. COUMADIN [Concomitant]
  22. ANTIFUNGAL [Concomitant]
     Route: 048
  23. COMBIVENT [Concomitant]
  24. PREDNISONE [Concomitant]
  25. LEVOFLOXACIN [Concomitant]

REACTIONS (26)
  - Pulmonary embolism [Recovered/Resolved]
  - Oral disorder [Unknown]
  - Dyspnoea [Unknown]
  - Oral candidiasis [Unknown]
  - Insomnia [Unknown]
  - Paraesthesia [Unknown]
  - Hypoaesthesia [Unknown]
  - Flushing [Unknown]
  - Chest pain [Recovered/Resolved]
  - Chest discomfort [Unknown]
  - Local swelling [Unknown]
  - Memory impairment [Unknown]
  - Oral discomfort [Unknown]
  - Gait disturbance [Recovered/Resolved]
  - Amnesia [Unknown]
  - Choking sensation [Recovering/Resolving]
  - Sinus congestion [Recovering/Resolving]
  - Dry eye [Recovering/Resolving]
  - Conjunctivitis [Recovering/Resolving]
  - Eye infection [Recovering/Resolving]
  - Rhinorrhoea [Recovering/Resolving]
  - Retching [Recovering/Resolving]
  - Ill-defined disorder [Not Recovered/Not Resolved]
  - Cheilitis [Recovering/Resolving]
  - Eye disorder [Recovering/Resolving]
  - Drug hypersensitivity [Recovering/Resolving]
